FAERS Safety Report 7282099-0 (Version None)
Quarter: 2011Q1

REPORT INFORMATION
  Report Type: 
  Country: None (occurrence: None)
  Receive Date: 20110208
  Receipt Date: 20110131
  Transmission Date: 20110831
  Serious: Yes (Hospitalization)
  Sender: FDA-Public Use
  Company Number: US-MERCK-1101USA00816

PATIENT
  Age: 73 Year
  Sex: Male

DRUGS (3)
  1. METFORMIN [Concomitant]
     Route: 065
  2. ZOCOR [Suspect]
     Indication: HYPERLIPIDAEMIA
     Route: 048
     Dates: start: 20081014, end: 20101012
  3. ZOCOR [Suspect]
     Route: 048
     Dates: start: 20060731, end: 20081001

REACTIONS (4)
  - BLOOD CREATINE PHOSPHOKINASE INCREASED [None]
  - RENAL FAILURE [None]
  - DIPLEGIA [None]
  - PAIN IN EXTREMITY [None]
